FAERS Safety Report 18456998 (Version 2)
Quarter: 2020Q4

REPORT INFORMATION
  Report Type: Spontaneous
  Country: US (occurrence: US)
  Receive Date: 20201103
  Receipt Date: 20201126
  Transmission Date: 20210114
  Serious: Yes (Other)
  Sender: FDA-Public Use
  Company Number: US-ASTRAZENECA-2020SF42401

PATIENT
  Age: 26807 Day
  Sex: Male
  Weight: 81.6 kg

DRUGS (5)
  1. BYETTA [Suspect]
     Active Substance: EXENATIDE
     Indication: TYPE 2 DIABETES MELLITUS
     Route: 058
  2. BYETTA [Suspect]
     Active Substance: EXENATIDE
     Indication: TYPE 2 DIABETES MELLITUS
     Dosage: 5.0MG UNKNOWN
     Route: 058
  3. BRILINTA [Suspect]
     Active Substance: TICAGRELOR
     Indication: STENT PLACEMENT
     Route: 048
  4. METFORMIN [Concomitant]
     Active Substance: METFORMIN HYDROCHLORIDE
  5. BRILINTA [Suspect]
     Active Substance: TICAGRELOR
     Indication: MYOCARDIAL INFARCTION
     Route: 048

REACTIONS (6)
  - Myocardial infarction [Unknown]
  - Device malfunction [Unknown]
  - Nausea [Not Recovered/Not Resolved]
  - Wrong technique in device usage process [Unknown]
  - Intentional device misuse [Unknown]
  - Overdose [Unknown]

NARRATIVE: CASE EVENT DATE: 20201022
